FAERS Safety Report 25422547 (Version 1)
Quarter: 2025Q2

REPORT INFORMATION
  Report Type: Spontaneous
  Country: US (occurrence: None)
  Receive Date: 20250610
  Receipt Date: 20250610
  Transmission Date: 20250716
  Serious: Yes (Hospitalization)
  Sender: FDA-CTU
  Company Number: None

PATIENT
  Age: 75 Year
  Sex: Male
  Weight: 122.4 kg

DRUGS (23)
  1. MYCOPHENOLIC ACID [Suspect]
     Active Substance: MYCOPHENOLIC ACID
     Indication: Renal transplant
     Dosage: FREQUENCY : TWICE A DAY;?
     Route: 048
     Dates: start: 20240611
  2. TACROLIMUS [Suspect]
     Active Substance: TACROLIMUS
     Indication: Renal transplant
     Dosage: FREQUENCY : TWICE A DAY;?
     Route: 048
     Dates: start: 20240805
  3. SUMATRIPTAN [Concomitant]
     Active Substance: SUMATRIPTAN
  4. SPIRONOLACTONE [Concomitant]
     Active Substance: SPIRONOLACTONE
  5. MAGNESIUM OXIDE [Concomitant]
     Active Substance: MAGNESIUM OXIDE
  6. PREDNISONE [Concomitant]
     Active Substance: PREDNISONE
  7. AMLODIPINE BESYLATE [Concomitant]
     Active Substance: AMLODIPINE BESYLATE
  8. TOPIRAMATE [Concomitant]
     Active Substance: TOPIRAMATE
  9. ALBUTEROL HFA INH [Concomitant]
  10. ASPIRIN [Concomitant]
     Active Substance: ASPIRIN
  11. ATORVASTATIN [Concomitant]
     Active Substance: ATORVASTATIN
  12. BUMETANIDE [Concomitant]
     Active Substance: BUMETANIDE
  13. CITALOPRAM [Concomitant]
     Active Substance: CITALOPRAM
  14. COENZYME Q-10 [Concomitant]
  15. DILTIAZEM [Concomitant]
     Active Substance: DILTIAZEM
  16. DOXAZOSIN [Concomitant]
     Active Substance: DOXAZOSIN MESYLATE
  17. GABAPENTIN [Concomitant]
     Active Substance: GABAPENTIN
  18. LOSARTAN [Concomitant]
     Active Substance: LOSARTAN
  19. MELATONIN [Concomitant]
     Active Substance: MELATONIN
  20. PANTOPRAZOLE [Concomitant]
     Active Substance: PANTOPRAZOLE
  21. TACROLIMUS [Concomitant]
     Active Substance: TACROLIMUS
  22. MULTIVITAMIN MEN 50+ [Concomitant]
  23. MYCOPHENOLIC ACID [Concomitant]
     Active Substance: MYCOPHENOLIC ACID

REACTIONS (1)
  - Hypervolaemia [None]

NARRATIVE: CASE EVENT DATE: 20250526
